FAERS Safety Report 8614575-X (Version None)
Quarter: 2012Q3

REPORT INFORMATION
  Report Type: 
  Country: None (occurrence: None)
  Receive Date: 20120823
  Receipt Date: 20120815
  Transmission Date: 20120928
  Serious: Yes (Hospitalization)
  Sender: FDA-Public Use
  Company Number: US-JNJFOC-20120807952

PATIENT
  Sex: Female
  Weight: 61.24 kg

DRUGS (7)
  1. ABILIFY [Suspect]
     Indication: DEPRESSION
     Route: 065
     Dates: start: 20120101, end: 20120101
  2. WELLBUTRIN [Suspect]
     Indication: DEPRESSION
     Route: 065
     Dates: start: 20120101, end: 20120101
  3. ELMIRON [Suspect]
     Indication: CYSTITIS INTERSTITIAL
     Route: 048
     Dates: start: 20120101
  4. PAXIL [Suspect]
     Indication: DEPRESSION
     Route: 065
     Dates: start: 20120101, end: 20120101
  5. LORTAB [Suspect]
     Indication: CYSTITIS INTERSTITIAL
     Route: 065
     Dates: start: 20120814
  6. TRAZODONE HYDROCHLORIDE [Suspect]
     Indication: DEPRESSION
     Route: 065
     Dates: start: 20120101, end: 20120101
  7. REMERON [Suspect]
     Indication: DEPRESSION
     Route: 065

REACTIONS (11)
  - CYSTITIS INTERSTITIAL [None]
  - ADVERSE DRUG REACTION [None]
  - DRUG PRESCRIBING ERROR [None]
  - SOMNOLENCE [None]
  - DEPRESSION [None]
  - ABNORMAL LOSS OF WEIGHT [None]
  - GAIT DISTURBANCE [None]
  - FALL [None]
  - LIP SWELLING [None]
  - MENTAL DISORDER [None]
  - HYPOKINESIA [None]
